FAERS Safety Report 7149363-7 (Version None)
Quarter: 2010Q4

REPORT INFORMATION
  Report Type: 
  Country: None (occurrence: None)
  Receive Date: 20101209
  Receipt Date: 20100813
  Transmission Date: 20110411
  Serious: No
  Sender: FDA-Public Use
  Company Number: US-KINGPHARMUSA00001-K201001046

PATIENT
  Sex: Female

DRUGS (1)
  1. EMBEDA [Suspect]
     Dosage: 30 MG, BID
     Dates: start: 20100811

REACTIONS (3)
  - CHEST PAIN [None]
  - HEADACHE [None]
  - TACHYCARDIA [None]
